FAERS Safety Report 10109008 (Version 1)
Quarter: 2014Q2

REPORT INFORMATION
  Report Type: Report from Study
  Country: US (occurrence: US)
  Receive Date: 20140425
  Receipt Date: 20140425
  Transmission Date: 20141212
  Serious: Yes (Other)
  Sender: FDA-Public Use
  Company Number: US-MYLANLABS-2014S1008811

PATIENT
  Age: 6 Year
  Sex: Female

DRUGS (7)
  1. IOBENGUANE (131 I) [Suspect]
     Indication: NEUROBLASTOMA
     Dosage: 18 MCI/KG (TOTAL 347 MCI) OVER APPROX 2H
     Route: 041
  2. BUSULFAN [Suspect]
     Indication: NEUROBLASTOMA
     Dosage: EVERY 6H FOR 16 DOSES ON D -6 TO -2; TARGET CSS 700-800
     Route: 042
  3. MELPHALAN [Suspect]
     Indication: NEUROBLASTOMA
     Dosage: ON D -1
     Route: 042
  4. MELPHALAN [Suspect]
     Indication: OFF LABEL USE
     Dosage: ON D -1
     Route: 042
  5. POTASSIUM IODIDE [Concomitant]
     Indication: THYROID THERAPY
     Route: 065
  6. POTASSIUM PERCHLORATE [Concomitant]
     Indication: THYROID THERAPY
     Route: 065
  7. URSODIOL [Concomitant]
     Indication: PROPHYLAXIS
     Dosage: URSODIOL DISULFATE
     Route: 065

REACTIONS (2)
  - Haematotoxicity [Recovering/Resolving]
  - Mucosal inflammation [Recovered/Resolved]
